FAERS Safety Report 8564107 (Version 2)
Quarter: 2012Q4

REPORT INFORMATION
  Report Type: Report from Study
  Country: US (occurrence: US)
  Receive Date: 20120516
  Receipt Date: 20121226
  Transmission Date: 20130627
  Serious: Yes (Other)
  Sender: FDA-Public Use
  Company Number: US-US-EMD SERONO, INC.-7131519

PATIENT
  Age: 38 Year
  Sex: Female

DRUGS (1)
  1. REBIF [Suspect]
     Indication: MULTIPLE SCLEROSIS
     Route: 058
     Dates: start: 20100205

REACTIONS (4)
  - Multiple sclerosis relapse [Recovering/Resolving]
  - Injection site mass [Unknown]
  - Injection site erythema [Unknown]
  - Fatigue [Unknown]
